FAERS Safety Report 6717982-5 (Version None)
Quarter: 2010Q2

REPORT INFORMATION
  Report Type: 
  Country: None (occurrence: None)
  Receive Date: 20100510
  Receipt Date: 20100504
  Transmission Date: 20101027
  Serious: Yes (Death)
  Sender: FDA-Public Use
  Company Number: PHEH2010US02733

PATIENT
  Sex: Male

DRUGS (1)
  1. NEORAL [Suspect]
     Indication: RENAL TRANSPLANT
     Dosage: 75 MG, BID
     Route: 048

REACTIONS (2)
  - CEREBROVASCULAR ACCIDENT [None]
  - WHITE BLOOD CELL COUNT INCREASED [None]
